FAERS Safety Report 13187337 (Version 1)
Quarter: 2017Q1

REPORT INFORMATION
  Report Type: Report from Study
  Country: FI (occurrence: FI)
  Receive Date: 20170206
  Receipt Date: 20170206
  Transmission Date: 20170428
  Serious: Yes (Hospitalization)
  Sender: FDA-Public Use
  Company Number: FI-ROCHE-1879780

PATIENT
  Age: 38 Year
  Sex: Female

DRUGS (5)
  1. CARBOPLATIN. [Concomitant]
     Active Substance: CARBOPLATIN
  2. BEVACIZUMAB [Suspect]
     Active Substance: BEVACIZUMAB
     Route: 042
     Dates: start: 20161219
  3. PACLITAXEL. [Concomitant]
     Active Substance: PACLITAXEL
  4. BEVACIZUMAB [Suspect]
     Active Substance: BEVACIZUMAB
     Route: 042
     Dates: start: 20161128
  5. BEVACIZUMAB [Suspect]
     Active Substance: BEVACIZUMAB
     Indication: OVARIAN CANCER
     Dosage: 900 MG
     Route: 042
     Dates: start: 20161013

REACTIONS (1)
  - Vaginal perforation [Recovered/Resolved]

NARRATIVE: CASE EVENT DATE: 20170105
